FAERS Safety Report 9333251 (Version 2)
Quarter: 2013Q2

REPORT INFORMATION
  Report Type: Spontaneous
  Country: FR (occurrence: FR)
  Receive Date: 20130606
  Receipt Date: 20130606
  Transmission Date: 20140414
  Serious: Yes (Hospitalization)
  Sender: FDA-Public Use
  Company Number: FR-OPTIMER PHARMACEUTICALS, INC.-20120138

PATIENT
  Sex: Male
  Weight: 80 kg

DRUGS (10)
  1. DIFICLIR [Suspect]
     Indication: CLOSTRIDIAL INFECTION
     Dosage: UNK, BID
     Route: 048
     Dates: start: 20120914, end: 20120924
  2. CARDENSIEL [Concomitant]
     Dosage: 2.5 MG, QD
     Route: 048
  3. LEVOTHYROX [Concomitant]
     Dosage: 50 UG, QD
     Route: 048
  4. SEROPLEX [Concomitant]
     Dosage: 10 MG, QD
     Route: 048
  5. XANAX [Concomitant]
     Dosage: 0.5 MG, QD
     Route: 065
  6. SACCHAROMYCES BOULARDII [Concomitant]
     Dosage: 200 MG, QD
     Route: 048
  7. GAVISCON [Concomitant]
     Dosage: UNK, TID
     Route: 048
  8. RACECADOTRIL [Concomitant]
     Dosage: UNK, TID
     Route: 048
  9. LASILIX [Concomitant]
     Dosage: UNK, BID
     Route: 048
  10. LANTUS [Concomitant]
     Dosage: UNK
     Route: 065

REACTIONS (2)
  - Drug ineffective [Not Recovered/Not Resolved]
  - Self-medication [None]
